FAERS Safety Report 5775129-6 (Version None)
Quarter: 2008Q2

REPORT INFORMATION
  Report Type: 
  Country: None (occurrence: None)
  Receive Date: 20080616
  Receipt Date: 20080616
  Transmission Date: 20081010
  Serious: Yes (Hospitalization)
  Sender: FDA-Public Use
  Company Number: None

PATIENT
  Age: 76 Year
  Sex: Female

DRUGS (1)
  1. ACTONEL [Suspect]
     Indication: OSTEOPOROSIS
     Dosage: 35MG ONCE WEEKLY PO
     Route: 048
     Dates: start: 20080430, end: 20080610

REACTIONS (6)
  - LIP SWELLING [None]
  - PAIN [None]
  - PALLOR [None]
  - PHARYNGOLARYNGEAL DISCOMFORT [None]
  - PRURITUS [None]
  - RASH [None]
